FAERS Safety Report 17884568 (Version 1)
Quarter: 2020Q2

REPORT INFORMATION
  Report Type: Spontaneous
  Country: US (occurrence: US)
  Receive Date: 20200611
  Receipt Date: 20200611
  Transmission Date: 20200714
  Serious: Yes (Death, Hospitalization)
  Sender: FDA-Public Use
  Company Number: US-MYLANLABS-2020M1054973

PATIENT
  Age: 43 Year
  Sex: Female

DRUGS (3)
  1. PROPOFOL. [Suspect]
     Active Substance: PROPOFOL
     Indication: STATUS EPILEPTICUS
     Dosage: 50 MICROGRAM/KILOGRAM, QMINUTE
  2. PROPOFOL. [Suspect]
     Active Substance: PROPOFOL
     Dosage: 10 MG/KG/HR; DOSE INCREASED AND THEN, PROPOFOL WAS WEANED OVER 12 HOURS
  3. NOREPINEPHRINE. [Suspect]
     Active Substance: NOREPINEPHRINE
     Indication: HYPOTENSION
     Dosage: UNK
     Route: 065

REACTIONS (1)
  - Propofol infusion syndrome [Fatal]
